FAERS Safety Report 16661694 (Version 1)
Quarter: 2019Q3

REPORT INFORMATION
  Report Type: Spontaneous
  Country: JP (occurrence: JP)
  Receive Date: 20190802
  Receipt Date: 20190802
  Transmission Date: 20191004
  Serious: Yes (Other)
  Sender: FDA-Public Use
  Company Number: JP-PFIZER INC-2019325624

PATIENT
  Sex: Male

DRUGS (1)
  1. LYRICA [Suspect]
     Active Substance: PREGABALIN
     Indication: ARTHRALGIA
     Dosage: UNK
     Route: 048
     Dates: end: 2019

REACTIONS (5)
  - Gynaecomastia [Unknown]
  - Neoplasm malignant [Unknown]
  - Breast induration [Unknown]
  - Product use in unapproved indication [Unknown]
  - Off label use [Unknown]
